FAERS Safety Report 17814864 (Version 1)
Quarter: 2020Q2

REPORT INFORMATION
  Report Type: Spontaneous
  Country: ES (occurrence: ES)
  Receive Date: 20200522
  Receipt Date: 20200522
  Transmission Date: 20200714
  Serious: Yes (Life-Threatening)
  Sender: FDA-Public Use
  Company Number: ES-TEVA-2020-ES-1239014

PATIENT
  Age: 60 Year
  Sex: Male
  Weight: 80 kg

DRUGS (7)
  1. ACETILCISTEINA (233A) [Concomitant]
     Indication: COVID-19 PNEUMONIA
     Route: 065
     Dates: start: 202004, end: 202004
  2. HIDROXICLOROQUINA (2143A) [Suspect]
     Active Substance: HYDROXYCHLOROQUINE
     Indication: COVID-19 PNEUMONIA
     Dosage: 200MG EVERY 12 HOURS
     Route: 048
     Dates: start: 20200410, end: 20200418
  3. SEPTRIN [Concomitant]
     Active Substance: SULFAMETHOXAZOLE\TRIMETHOPRIM
     Indication: COVID-19 PNEUMONIA
     Route: 065
     Dates: start: 202004, end: 202004
  4. CORTIC -  CORTICOIDE [Concomitant]
     Indication: COVID-19 PNEUMONIA
     Dosage: BOLUS CORTICOSTEROIDS IV
     Route: 040
     Dates: start: 202004, end: 202004
  5. KALETRA [Concomitant]
     Active Substance: LOPINAVIR\RITONAVIR
     Indication: COVID-19 PNEUMONIA
     Route: 048
     Dates: start: 202004, end: 202004
  6. LEVOFLOXACINO (2791A) [Concomitant]
     Active Substance: LEVOFLOXACIN
     Indication: COVID-19 PNEUMONIA
     Route: 065
     Dates: start: 202004, end: 202004
  7. CICLOSPORINA (406A) [Concomitant]
     Active Substance: CYCLOSPORINE
     Indication: COVID-19 PNEUMONIA
     Route: 065
     Dates: start: 202004, end: 202004

REACTIONS (2)
  - Intrusive thoughts [Recovered/Resolved]
  - Suicide attempt [Recovered/Resolved]

NARRATIVE: CASE EVENT DATE: 20200422
